FAERS Safety Report 5358249-X (Version None)
Quarter: 2007Q2

REPORT INFORMATION
  Report Type: 
  Country: None (occurrence: None)
  Receive Date: 20070613
  Receipt Date: 20070613
  Transmission Date: 20071010
  Serious: No
  Sender: FDA-Public Use
  Company Number: None

PATIENT

DRUGS (1)
  1. SODIUM POLYSTYRENE SULFONATE [Suspect]

REACTIONS (1)
  - MEDICATION ERROR [None]
